FAERS Safety Report 7932907-2 (Version None)
Quarter: 2011Q4

REPORT INFORMATION
  Report Type: 
  Country: None (occurrence: None)
  Receive Date: 20111122
  Receipt Date: 20111116
  Transmission Date: 20120403
  Serious: No
  Sender: FDA-Public Use
  Company Number: US-PFIZER INC-2011186043

PATIENT
  Sex: Female
  Weight: 29.478 kg

DRUGS (7)
  1. ASMANEX TWISTHALER [Concomitant]
     Dosage: 110 UG, UNK
  2. MAGNESIUM HYDROXIDE [Concomitant]
     Dosage: 400 MG, UNK
  3. CLARITIN [Concomitant]
     Dosage: 10 MG, UNK
  4. RITALIN [Concomitant]
     Dosage: 5 MG, UNK
  5. GENOTROPIN [Suspect]
     Dosage: 1.6 MG, DAILY
     Route: 058
  6. FLONASE [Concomitant]
     Dosage: UNK
  7. MOTRIN IB [Concomitant]
     Dosage: 200 MG, UNK

REACTIONS (3)
  - HEADACHE [None]
  - MUSCLE SPASMS [None]
  - DRUG INEFFECTIVE [None]
